FAERS Safety Report 17907768 (Version 1)
Quarter: 2020Q2

REPORT INFORMATION
  Report Type: Spontaneous
  Country: US (occurrence: US)
  Receive Date: 20200617
  Receipt Date: 20200617
  Transmission Date: 20200714
  Serious: Yes (Other)
  Sender: FDA-Public Use
  Company Number: None

PATIENT
  Age: 77 Year
  Sex: Female
  Weight: 36.29 kg

DRUGS (19)
  1. DOCUSATE [Concomitant]
     Active Substance: DOCUSATE
  2. SOLU-MEDROL [Concomitant]
     Active Substance: METHYLPREDNISOLONE SODIUM SUCCINATE
  3. PANTOPRAZOLE [Concomitant]
     Active Substance: PANTOPRAZOLE
  4. MIDAZOLAM. [Concomitant]
     Active Substance: MIDAZOLAM
  5. ATORVASTATIN [Concomitant]
     Active Substance: ATORVASTATIN
  6. 0.5% NORMAL SALINE [Concomitant]
  7. REMDESIVIR 0.7 MG/ML [Suspect]
     Active Substance: REMDESIVIR
     Indication: COVID-19
     Route: 041
     Dates: start: 20200607, end: 20200608
  8. REMDESIVIR 0.7 MG/ML [Suspect]
     Active Substance: REMDESIVIR
     Route: 041
  9. FAMOTIDINE. [Concomitant]
     Active Substance: FAMOTIDINE
  10. LANTUS [Concomitant]
     Active Substance: INSULIN GLARGINE
  11. LISPRO INSULIN [Concomitant]
     Active Substance: INSULIN LISPRO
  12. REGULAR INSULIN [Concomitant]
     Active Substance: INSULIN NOS
  13. SODIUM BICARBONATE. [Concomitant]
     Active Substance: SODIUM BICARBONATE
  14. D5 WITH SODIUM BICARBONATE [Concomitant]
  15. NOREPINEPHRINE. [Concomitant]
     Active Substance: NOREPINEPHRINE
  16. ENOXAPARIN [Concomitant]
     Active Substance: ENOXAPARIN
  17. ROCURONIUM [Concomitant]
     Active Substance: ROCURONIUM BROMIDE
  18. HYDRALAZINE [Concomitant]
     Active Substance: HYDRALAZINE HYDROCHLORIDE
  19. FENTANYL DRIP [Concomitant]

REACTIONS (1)
  - Acute kidney injury [None]

NARRATIVE: CASE EVENT DATE: 20200608
